FAERS Safety Report 12312763 (Version 1)
Quarter: 2016Q2

REPORT INFORMATION
  Report Type: Spontaneous
  Country: US (occurrence: None)
  Receive Date: 20160427
  Receipt Date: 20160427
  Transmission Date: 20160815
  Serious: Yes (Life-Threatening, Disabling, Other)
  Sender: FDA-Public Use
  Company Number: None

PATIENT
  Age: 55 Year
  Sex: Female
  Weight: 58.97 kg

DRUGS (3)
  1. MULTI VITAMIN [Concomitant]
     Active Substance: VITAMINS
  2. CALCIUM [Concomitant]
     Active Substance: CALCIUM
  3. RESTASIS [Suspect]
     Active Substance: CYCLOSPORINE
     Indication: DRY EYE
     Route: 047
     Dates: start: 20160331, end: 20160425

REACTIONS (10)
  - Lethargy [None]
  - Oral mucosal blistering [None]
  - Dizziness [None]
  - Anxiety [None]
  - Acne [None]
  - Impaired driving ability [None]
  - Neck pain [None]
  - Road traffic accident [None]
  - Insomnia [None]
  - Heart rate increased [None]

NARRATIVE: CASE EVENT DATE: 20160424
